FAERS Safety Report 8820090 (Version 7)
Quarter: 2013Q3

REPORT INFORMATION
  Report Type: Spontaneous
  Country: US (occurrence: US)
  Receive Date: 20121001
  Receipt Date: 20130812
  Transmission Date: 20140515
  Serious: Yes (Hospitalization, Other)
  Sender: FDA-Public Use
  Company Number: US-009507513-1103USA00967

PATIENT
  Sex: Female
  Weight: 82.86 kg

DRUGS (6)
  1. FOSAMAX [Suspect]
     Indication: OSTEOPOROSIS
     Dosage: 70 MG, UNK
     Route: 048
     Dates: start: 20030327, end: 20080109
  2. FOSAMAX [Suspect]
     Indication: BONE DENSITY DECREASED
  3. FOSAMAX [Suspect]
     Dosage: UNK
     Route: 048
     Dates: start: 200802
  4. ALENDRONATE SODIUM [Suspect]
     Indication: OSTEOPOROSIS
     Dosage: 70 MG, UNK
     Route: 048
     Dates: start: 20080326, end: 20090821
  5. ALENDRONATE SODIUM [Suspect]
     Indication: BONE DENSITY DECREASED
  6. BONIVA [Suspect]
     Indication: OSTEOPOROSIS
     Dosage: UNK
     Route: 048
     Dates: start: 2009, end: 2010

REACTIONS (19)
  - Open reduction of fracture [Unknown]
  - Fracture nonunion [Unknown]
  - Device failure [Unknown]
  - Medical device removal [Unknown]
  - Knee operation [Unknown]
  - Bone lesion [Unknown]
  - Open reduction of fracture [Unknown]
  - Bone lesion [Unknown]
  - Femur fracture [Recovered/Resolved]
  - Intramedullary rod insertion [Unknown]
  - Hyperlipidaemia [Unknown]
  - Hypertension [Unknown]
  - Femur fracture [Unknown]
  - Femur fracture [Unknown]
  - Vitamin D deficiency [Unknown]
  - Bone disorder [Unknown]
  - Blood pressure increased [Unknown]
  - Eustachian tube dysfunction [Unknown]
  - Constipation [Unknown]
